FAERS Safety Report 20474205 (Version 1)
Quarter: 2022Q1

REPORT INFORMATION
  Report Type: Spontaneous
  Country: FR (occurrence: FR)
  Receive Date: 20220215
  Receipt Date: 20220215
  Transmission Date: 20220424
  Serious: Yes (Hospitalization)
  Sender: FDA-Public Use
  Company Number: FR-PFIZER INC-202200232683

PATIENT
  Age: 68 Year
  Sex: Male
  Weight: 94 kg

DRUGS (10)
  1. COMIRNATY [Suspect]
     Active Substance: TOZINAMERAN
     Indication: COVID-19 immunisation
     Dosage: DOSE NUMBER UNKNOWN (BOOSTER), SINGLE
     Dates: start: 20211215, end: 20211215
  2. CARBOPLATIN [Suspect]
     Active Substance: CARBOPLATIN
     Indication: Small cell lung cancer metastatic
     Dosage: FIRST COURSE
     Dates: start: 20211127, end: 20211129
  3. CARBOPLATIN [Suspect]
     Active Substance: CARBOPLATIN
     Dosage: SECOND COURSE
     Dates: start: 20211220, end: 20211222
  4. ETOPOSIDE [Suspect]
     Active Substance: ETOPOSIDE
     Indication: Small cell lung cancer metastatic
     Dosage: FIRST COURSE
     Dates: start: 20211127, end: 20211129
  5. ETOPOSIDE [Suspect]
     Active Substance: ETOPOSIDE
     Dosage: SECOND COURSE
     Dates: start: 20211220, end: 20211222
  6. PEGFILGRASTIM [Suspect]
     Active Substance: PEGFILGRASTIM
     Indication: Small cell lung cancer metastatic
     Dosage: FIRST COURSE
     Dates: start: 20211130, end: 20211130
  7. VALSARTAN [Concomitant]
     Active Substance: VALSARTAN
     Indication: Hypertension
  8. AMLODIPINE [Concomitant]
     Active Substance: AMLODIPINE BESYLATE
     Indication: Hypertension
  9. METFORMIN [Concomitant]
     Active Substance: METFORMIN HYDROCHLORIDE
     Indication: Type 2 diabetes mellitus
  10. LIRAGLUTIDE [Concomitant]
     Active Substance: LIRAGLUTIDE
     Indication: Type 2 diabetes mellitus

REACTIONS (2)
  - Febrile bone marrow aplasia [Recovering/Resolving]
  - Urinary tract infection [Recovering/Resolving]

NARRATIVE: CASE EVENT DATE: 20211201
